FAERS Safety Report 14549364 (Version 1)
Quarter: 2018Q1

REPORT INFORMATION
  Report Type: Spontaneous
  Country: FR (occurrence: FR)
  Receive Date: 20180219
  Receipt Date: 20180219
  Transmission Date: 20180509
  Serious: Yes (Life-Threatening, Hospitalization, Other)
  Sender: FDA-Public Use
  Company Number: FR-ZYDUS-019098

PATIENT
  Age: 74 Year
  Sex: Female

DRUGS (7)
  1. HEPARIN [Concomitant]
     Active Substance: HEPARIN SODIUM
  2. BISOPROLOL [Concomitant]
     Active Substance: BISOPROLOL
  3. PANTOPRAZOLE [Concomitant]
     Active Substance: PANTOPRAZOLE
  4. VENLAFAXINE/VENLAFAXINE HYDROCHLORIDE [Concomitant]
  5. AMIODARONE [Suspect]
     Active Substance: AMIODARONE
     Indication: ATRIAL FIBRILLATION
     Dosage: 300 MG OVER THE FIRST 60 MINUTES
     Route: 041
  6. PARACETAMOL [Concomitant]
     Active Substance: ACETAMINOPHEN
  7. ACETYLSALICYLIC ACID [Concomitant]
     Active Substance: ASPIRIN

REACTIONS (4)
  - Drug ineffective [Unknown]
  - Toxicity to various agents [Recovering/Resolving]
  - Encephalopathy [Recovering/Resolving]
  - Acute hepatic failure [Recovering/Resolving]
